FAERS Safety Report 14566212 (Version 2)
Quarter: 2018Q1

REPORT INFORMATION
  Report Type: Spontaneous
  Country: US (occurrence: US)
  Receive Date: 20180223
  Receipt Date: 20180306
  Transmission Date: 20180509
  Serious: No
  Sender: FDA-Public Use
  Company Number: US-PFIZER INC-2018066839

PATIENT
  Age: 47 Year
  Sex: Male
  Weight: 63 kg

DRUGS (4)
  1. LAMICTAL [Concomitant]
     Active Substance: LAMOTRIGINE
     Dosage: 350 MG, DAILY
  2. AMLODIPINE BESILATE [Suspect]
     Active Substance: AMLODIPINE BESYLATE
     Indication: RAYNAUD^S PHENOMENON
     Dosage: 5 MG, DAILY
     Route: 048
     Dates: start: 201712
  3. AMLODIPINE BESILATE [Suspect]
     Active Substance: AMLODIPINE BESYLATE
     Dosage: 10 MG, 1X/DAY
     Route: 048
     Dates: start: 20180105, end: 2018
  4. LAMICTAL [Concomitant]
     Active Substance: LAMOTRIGINE
     Indication: DEPRESSION
     Dosage: 400 MG, DAILY (2 TABLETS TAKEN BY MOUTH DAILY)
     Route: 048

REACTIONS (17)
  - Skin lesion [Recovered/Resolved]
  - Rash [Unknown]
  - Skin striae [Unknown]
  - Skin discolouration [Not Recovered/Not Resolved]
  - Hair disorder [Unknown]
  - Facial pain [Not Recovered/Not Resolved]
  - Product use in unapproved indication [Unknown]
  - Madarosis [Unknown]
  - Drug ineffective [Unknown]
  - Pruritus [Recovered/Resolved]
  - Urticaria [Unknown]
  - Sunburn [Unknown]
  - Scar [Unknown]
  - Alopecia [Not Recovered/Not Resolved]
  - Flushing [Unknown]
  - Influenza like illness [Unknown]
  - Acne [Unknown]

NARRATIVE: CASE EVENT DATE: 201712
